FAERS Safety Report 13916185 (Version 2)
Quarter: 2017Q3

REPORT INFORMATION
  Report Type: Spontaneous
  Country: US (occurrence: US)
  Receive Date: 20170829
  Receipt Date: 20170830
  Transmission Date: 20171127
  Serious: No
  Sender: FDA-Public Use
  Company Number: US-ENDO PHARMACEUTICALS INC-2017-000343

PATIENT
  Sex: Male
  Weight: 83.46 kg

DRUGS (2)
  1. PREDNISONE TABLETS 10MG [Suspect]
     Active Substance: PREDNISONE
     Indication: SINUSITIS
     Dosage: 10 MG, UNKNOWN
     Route: 065
     Dates: start: 20161216, end: 20161221
  2. PSEUDOEPHEDRINE [Concomitant]
     Active Substance: PSEUDOEPHEDRINE
     Indication: SINUSITIS
     Dosage: 1 DF, BID
     Route: 048

REACTIONS (4)
  - Product packaging issue [Unknown]
  - Wrong technique in product usage process [Unknown]
  - Off label use [Unknown]
  - Product taste abnormal [Unknown]
